FAERS Safety Report 7381670-5 (Version None)
Quarter: 2011Q1

REPORT INFORMATION
  Report Type: 
  Country: None (occurrence: None)
  Receive Date: 20110329
  Receipt Date: 20101018
  Transmission Date: 20110831
  Serious: Yes (Hospitalization)
  Sender: FDA-Public Use
  Company Number: US-BAYER-201023612NA

PATIENT
  Sex: Female
  Weight: 56.818 kg

DRUGS (7)
  1. ANTIBIOTICS [Concomitant]
  2. IMITREX [Concomitant]
  3. ZIAC [Concomitant]
     Indication: BLOOD PRESSURE ABNORMAL
     Dates: start: 20050401
  4. NECON [Concomitant]
  5. YAZ [Suspect]
     Indication: CONTRACEPTION
     Dates: start: 20040101
  6. YAZ [Suspect]
     Indication: PREMENSTRUAL SYNDROME
  7. SYNTHROID [Concomitant]
     Indication: THYROID DISORDER
     Dates: start: 20040401

REACTIONS (4)
  - NAUSEA [None]
  - GALLBLADDER PAIN [None]
  - ABDOMINAL PAIN [None]
  - GALLBLADDER NON-FUNCTIONING [None]
